FAERS Safety Report 11048874 (Version 7)
Quarter: 2015Q4

REPORT INFORMATION
  Report Type: Spontaneous
  Country: US (occurrence: US)
  Receive Date: 20150420
  Receipt Date: 20151015
  Transmission Date: 20160304
  Serious: Yes (Hospitalization, Other)
  Sender: FDA-Public Use
  Company Number: US-GLAXOSMITHKLINE INC.-US2015052786

PATIENT
  Age: 56 Year
  Sex: Female
  Weight: 55.33 kg

DRUGS (16)
  1. ADVAIR DISKUS [Suspect]
     Active Substance: FLUTICASONE PROPIONATE\SALMETEROL XINAFOATE
     Indication: ASTHMA
     Dosage: 1 PUFF(S), BID
     Route: 055
  2. ALBUTEROL. [Concomitant]
     Active Substance: ALBUTEROL
  3. LIPITOR [Concomitant]
     Active Substance: ATORVASTATIN CALCIUM
  4. ADVAIR DISKUS [Suspect]
     Active Substance: FLUTICASONE PROPIONATE\SALMETEROL XINAFOATE
     Indication: CHRONIC OBSTRUCTIVE PULMONARY DISEASE
     Dosage: 1 PUFF(S), QD
     Route: 055
     Dates: start: 2000
  5. ASPIRIN. [Concomitant]
     Active Substance: ASPIRIN
  6. NORVASC [Concomitant]
     Active Substance: AMLODIPINE BESYLATE
  7. OXYGEN. [Concomitant]
     Active Substance: OXYGEN
  8. MAGNESIUM [Concomitant]
     Active Substance: MAGNESIUM
  9. SPIRIVA [Concomitant]
     Active Substance: TIOTROPIUM BROMIDE MONOHYDRATE
  10. PRINIVIL [Concomitant]
     Active Substance: LISINOPRIL
  11. DUONEB [Concomitant]
     Active Substance: ALBUTEROL SULFATE\IPRATROPIUM BROMIDE
  12. CALCIUM ACETATE. [Concomitant]
     Active Substance: CALCIUM ACETATE
  13. ZESTRIL [Concomitant]
     Active Substance: LISINOPRIL
  14. AQUASOL E [Concomitant]
  15. INFLUENZA VACCINE UNSPECIFIED 2014-2015 SEASON [Concomitant]
     Active Substance: INFLUENZA VIRUS VACCINE
  16. PNEUMOCOCCAL VACCINE POLYVALENT NOS [Concomitant]
     Active Substance: PNEUMOCOCCAL VACCINE POLYVALENT

REACTIONS (32)
  - Chronic obstructive pulmonary disease [Unknown]
  - Hypernatraemia [Unknown]
  - Malaise [Unknown]
  - Dyspnoea exertional [Recovered/Resolved]
  - Tobacco abuse [Not Recovered/Not Resolved]
  - Nasal dryness [Unknown]
  - Infection [Unknown]
  - Sputum discoloured [Unknown]
  - Heart rate increased [Not Recovered/Not Resolved]
  - Right ventricular hypertrophy [Not Recovered/Not Resolved]
  - Dyspnoea [Recovered/Resolved]
  - Myocardial infarction [Unknown]
  - Hypertension [Not Recovered/Not Resolved]
  - Cough [Recovered/Resolved]
  - Productive cough [Recovered/Resolved]
  - Wheezing [Recovering/Resolving]
  - Lung hyperinflation [Unknown]
  - Dry skin [Unknown]
  - Drug ineffective [Unknown]
  - Electrocardiogram QT prolonged [Not Recovered/Not Resolved]
  - Hyperlipidaemia [Not Recovered/Not Resolved]
  - Fatigue [Unknown]
  - Nasopharyngitis [Unknown]
  - Respiratory failure [Recovered/Resolved]
  - Respiratory distress [Recovered/Resolved]
  - Nasal congestion [Unknown]
  - Drug administration error [Unknown]
  - Underweight [Unknown]
  - Sinus tachycardia [Not Recovered/Not Resolved]
  - Oxygen saturation decreased [Recovering/Resolving]
  - Pulmonary congestion [Unknown]
  - Cardiac disorder [Not Recovered/Not Resolved]

NARRATIVE: CASE EVENT DATE: 2000
